FAERS Safety Report 9513280 (Version 1)
Quarter: 2013Q3

REPORT INFORMATION
  Report Type: Spontaneous
  Country: US (occurrence: US)
  Receive Date: 20130910
  Receipt Date: 20130910
  Transmission Date: 20140515
  Serious: No
  Sender: FDA-Public Use
  Company Number: US-TEVA-431073USA

PATIENT
  Age: 60 Year
  Sex: Female

DRUGS (1)
  1. COPAXONE [Suspect]
     Indication: MULTIPLE SCLEROSIS
     Dates: start: 20070723

REACTIONS (5)
  - Balance disorder [Unknown]
  - Headache [Unknown]
  - Depression [Unknown]
  - Memory impairment [Unknown]
  - Hypoaesthesia [Unknown]
